FAERS Safety Report 7570454-0 (Version None)
Quarter: 2011Q2

REPORT INFORMATION
  Report Type: 
  Country: None (occurrence: None)
  Receive Date: 20110624
  Receipt Date: 20110303
  Transmission Date: 20111010
  Serious: No
  Sender: FDA-Public Use
  Company Number: US-ALLERGAN-1103028US

PATIENT
  Age: 56 Year
  Sex: Female

DRUGS (5)
  1. RESTASIS [Concomitant]
     Indication: DRY EYE
     Dosage: 1 GTT, BID
     Route: 047
     Dates: start: 20101209
  2. REFRESH PLUS [Concomitant]
     Dosage: UNK
     Route: 047
  3. LATISSE [Suspect]
     Indication: PRODUCT USED FOR UNKNOWN INDICATION
     Dosage: 1 GTT, QHS
     Route: 061
     Dates: start: 20110217, end: 20110228
  4. FISH OIL [Concomitant]
  5. COENZYME Q10 [Concomitant]

REACTIONS (8)
  - EYELASH DISCOLOURATION [None]
  - DRY EYE [None]
  - PHOTOPSIA [None]
  - EYE PAIN [None]
  - ABNORMAL SENSATION IN EYE [None]
  - SCLERAL DISCOLOURATION [None]
  - INCORRECT DOSE ADMINISTERED [None]
  - VISUAL IMPAIRMENT [None]
